FAERS Safety Report 8307119-3 (Version None)
Quarter: 2012Q2

REPORT INFORMATION
  Report Type: 
  Country: None (occurrence: None)
  Receive Date: 20120424
  Receipt Date: 20120413
  Transmission Date: 20120825
  Serious: Yes (Other)
  Sender: FDA-Public Use
  Company Number: US-PFIZER INC-2012097485

PATIENT
  Sex: Female
  Weight: 127 kg

DRUGS (5)
  1. PRISTIQ [Suspect]
     Indication: DEPRESSION
     Dosage: 100 MG, 1X/DAY
     Route: 048
     Dates: start: 20111001, end: 20111201
  2. XANAX [Concomitant]
     Indication: ANXIETY
     Dosage: UNK
  3. VITAMIN D [Concomitant]
     Indication: VITAMIN SUPPLEMENTATION
     Dosage: UNK
  4. PERCOCET [Concomitant]
     Dosage: UNK
  5. ADENINE [Concomitant]
     Indication: VITAMIN SUPPLEMENTATION
     Dosage: UNK

REACTIONS (2)
  - MUSCLE TWITCHING [None]
  - FIBROMYALGIA [None]
